FAERS Safety Report 10230330 (Version 1)
Quarter: 2014Q2

REPORT INFORMATION
  Report Type: Spontaneous
  Country: DE (occurrence: DE)
  Receive Date: 20140611
  Receipt Date: 20140611
  Transmission Date: 20141212
  Serious: Yes (Other)
  Sender: FDA-Public Use
  Company Number: DE-ELI_LILLY_AND_COMPANY-DE201406001138

PATIENT
  Age: 52 Year
  Sex: Female

DRUGS (10)
  1. CYMBALTA [Suspect]
     Indication: PRODUCT USED FOR UNKNOWN INDICATION
     Dosage: 30 MG, QD
     Route: 048
     Dates: start: 20130822
  2. CYMBALTA [Interacting]
     Dosage: 60 MG, QD
     Route: 048
     Dates: start: 20130823, end: 20130824
  3. CYMBALTA [Interacting]
     Dosage: 90 MG, QD
     Route: 048
     Dates: start: 20130825, end: 20130908
  4. CYMBALTA [Interacting]
     Dosage: 120 MG, QD
     Route: 048
     Dates: start: 20130909
  5. ABILIFY [Interacting]
     Indication: PRODUCT USED FOR UNKNOWN INDICATION
     Dosage: 5 MG, QD
     Route: 048
     Dates: start: 20130923, end: 20130930
  6. ABILIFY [Interacting]
     Dosage: 10 MG, QD
     Route: 048
     Dates: start: 20131001
  7. SEROQUEL [Concomitant]
     Indication: PRODUCT USED FOR UNKNOWN INDICATION
     Dosage: 50 MG, QD
     Route: 048
     Dates: start: 20130731
  8. TAVOR [Concomitant]
     Indication: PRODUCT USED FOR UNKNOWN INDICATION
     Dosage: 1 MG, QD
     Route: 048
     Dates: start: 20130731, end: 20131021
  9. TAVOR [Concomitant]
     Dosage: 0.5 MG, QD
     Route: 048
     Dates: start: 20131022
  10. ERGENYL [Concomitant]
     Indication: PRODUCT USED FOR UNKNOWN INDICATION
     Dosage: 1000 MG, QD
     Route: 048
     Dates: start: 2012

REACTIONS (2)
  - Alopecia [Unknown]
  - Drug interaction [Unknown]
